FAERS Safety Report 21326955 (Version 2)
Quarter: 2022Q3

REPORT INFORMATION
  Report Type: Spontaneous
  Country: US (occurrence: US)
  Receive Date: 20220913
  Receipt Date: 20220928
  Transmission Date: 20221027
  Serious: No
  Sender: FDA-Public Use
  Company Number: US-AIMMUNE THERAPEUTICS, INC.-2022AIMT02521

PATIENT

DRUGS (6)
  1. PALFORZIA [Suspect]
     Active Substance: PEANUT
     Indication: Food allergy
     Dosage: IDE (0.5-6MG), ONCE
     Route: 048
     Dates: start: 20220308, end: 20220308
  2. PALFORZIA [Suspect]
     Active Substance: PEANUT
     Dosage: 200 MG, 1XDAY
     Route: 048
     Dates: start: 20220829, end: 20220907
  3. PALFORZIA [Suspect]
     Active Substance: PEANUT
     Dosage: 200 MG, 1XDAY, LAST DOSE PRIOR TO EVENT
     Route: 048
     Dates: start: 20220906, end: 20220906
  4. PALFORZIA [Suspect]
     Active Substance: PEANUT
     Dosage: 100 MG, ONCE, DOSE DECREASED TO 50% OF 200 MG
     Route: 048
     Dates: start: 20220908, end: 20220908
  5. PALFORZIA [Suspect]
     Active Substance: PEANUT
     Dosage: 150 MG, 1X/DAY, DOSE INCREASED TO 75% OF 200 MG
     Route: 048
     Dates: start: 20220909, end: 20220911
  6. PALFORZIA [Suspect]
     Active Substance: PEANUT
     Dosage: 200 MG, 1X/DAY, DOSE RESUMED
     Route: 048
     Dates: start: 20220912

REACTIONS (1)
  - Abdominal discomfort [Unknown]

NARRATIVE: CASE EVENT DATE: 20220906
